FAERS Safety Report 8566690-7 (Version None)
Quarter: 2012Q3

REPORT INFORMATION
  Report Type: 
  Country: None (occurrence: None)
  Receive Date: 20120803
  Receipt Date: 20120802
  Transmission Date: 20120928
  Serious: Yes (Other)
  Sender: FDA-Public Use
  Company Number: CA-BRISTOL-MYERS SQUIBB COMPANY-16688756

PATIENT
  Age: 43 Year
  Sex: Female
  Weight: 78 kg

DRUGS (6)
  1. BENEFIBER [Concomitant]
     Indication: CONSTIPATION
     Dates: start: 20101107
  2. SERAX [Concomitant]
     Indication: INSOMNIA
     Dates: start: 20101001
  3. IBUPROFEN (ADVIL) [Concomitant]
     Indication: HEADACHE
     Route: 048
     Dates: start: 20000101
  4. RIVOTRIL [Concomitant]
     Indication: ANXIETY
     Route: 048
     Dates: start: 20111102
  5. VITALUX [Concomitant]
     Indication: PROPHYLAXIS
     Dosage: 1DF=4 TABS
     Route: 048
     Dates: start: 20090101
  6. SPRYCEL [Suspect]
     Indication: CHRONIC MYELOID LEUKAEMIA
     Dates: start: 20101025, end: 20120613

REACTIONS (1)
  - LYMPHADENOPATHY [None]
